FAERS Safety Report 17054437 (Version 26)
Quarter: 2025Q3

REPORT INFORMATION
  Report Type: Report from Study
  Country: US (occurrence: US)
  Receive Date: 20191120
  Receipt Date: 20250801
  Transmission Date: 20251021
  Serious: Yes (Hospitalization, Other)
  Sender: TAKEDA
  Company Number: US-SHIRE-US201938009

PATIENT
  Age: 77 Year
  Sex: Female
  Weight: 71 kg

DRUGS (50)
  1. HUMAN IMMUNOGLOBULIN G [Suspect]
     Active Substance: HUMAN IMMUNOGLOBULIN G
     Indication: Immunodeficiency common variable
     Dosage: 24 GRAM, Q2WEEKS
     Dates: start: 20170913
  2. HUMAN IMMUNOGLOBULIN G [Suspect]
     Active Substance: HUMAN IMMUNOGLOBULIN G
     Dosage: 24 GRAM, Q2WEEKS
     Dates: start: 20180424
  3. HUMAN IMMUNOGLOBULIN G [Suspect]
     Active Substance: HUMAN IMMUNOGLOBULIN G
     Dosage: 24 GRAM, Q2WEEKS
  4. MESALAMINE [Suspect]
     Active Substance: MESALAMINE
     Indication: Colitis ulcerative
  5. AMLODIPINE [Suspect]
     Active Substance: AMLODIPINE BESYLATE
     Indication: Product used for unknown indication
  6. BACITRACIN [Suspect]
     Active Substance: BACITRACIN
     Indication: Product used for unknown indication
  7. NEOSPORIN [Suspect]
     Active Substance: BACITRACIN ZINC\NEOMYCIN SULFATE\POLYMYXIN B SULFATE
     Indication: Product used for unknown indication
  8. LASIX [Suspect]
     Active Substance: FUROSEMIDE
     Indication: Product used for unknown indication
  9. DIPHENHYDRAMINE [Concomitant]
     Active Substance: DIPHENHYDRAMINE
     Indication: Product used for unknown indication
  10. SYMBICORT [Concomitant]
     Active Substance: BUDESONIDE\FORMOTEROL FUMARATE DIHYDRATE
  11. HYDRALAZINE [Concomitant]
     Active Substance: HYDRALAZINE HYDROCHLORIDE
  12. EPINEPHRINE [Concomitant]
     Active Substance: EPINEPHRINE
     Indication: Product used for unknown indication
  13. GLUCOSAMINE [Concomitant]
     Active Substance: GLUCOSAMINE
     Indication: Product used for unknown indication
  14. CRANBERRY [Concomitant]
     Active Substance: CRANBERRY
     Indication: Product used for unknown indication
  15. FIBER THERAPY (CALCIUM POLYCARBOPHIL) [Concomitant]
     Active Substance: CALCIUM POLYCARBOPHIL
  16. VITAMIN B [Concomitant]
     Active Substance: VITAMIN B
  17. VITAMIN D [Concomitant]
     Active Substance: VITAMIN D NOS
  18. ACETAMINOPHEN [Concomitant]
     Active Substance: ACETAMINOPHEN
     Indication: Product used for unknown indication
  19. ALLOPURINOL [Concomitant]
     Active Substance: ALLOPURINOL
     Indication: Product used for unknown indication
  20. Florajen3 [Concomitant]
     Indication: Product used for unknown indication
  21. CLONIDINE HYDROCHLORIDE [Concomitant]
     Active Substance: CLONIDINE HYDROCHLORIDE
  22. LOSARTAN POTASSIUM [Concomitant]
     Active Substance: LOSARTAN POTASSIUM
     Indication: Product used for unknown indication
  23. VITAMIN C [Concomitant]
     Active Substance: ASCORBIC ACID
  24. PROAIR HFA [Concomitant]
     Active Substance: ALBUTEROL SULFATE
     Indication: Product used for unknown indication
  25. FISH OIL [Concomitant]
     Active Substance: FISH OIL
     Indication: Product used for unknown indication
  26. GINGER [Concomitant]
     Active Substance: GINGER
  27. MAGNESIUM [Concomitant]
     Active Substance: MAGNESIUM
     Indication: Product used for unknown indication
  28. LIDOCAINE [Concomitant]
     Active Substance: LIDOCAINE
     Indication: Product used for unknown indication
  29. GARLIC [Concomitant]
     Active Substance: GARLIC
     Indication: Product used for unknown indication
  30. LYSINE [Concomitant]
     Active Substance: LYSINE
  31. GEMFIBROZIL [Concomitant]
     Active Substance: GEMFIBROZIL
  32. METOPROLOL [Concomitant]
     Active Substance: METOPROLOL
     Indication: Product used for unknown indication
  33. AMLODIPINE BESYLATE [Concomitant]
     Active Substance: AMLODIPINE BESYLATE
     Indication: Product used for unknown indication
  34. OMEPRAZOLE [Concomitant]
     Active Substance: OMEPRAZOLE
     Indication: Product used for unknown indication
  35. ASPIRIN [Concomitant]
     Active Substance: ASPIRIN
     Indication: Product used for unknown indication
  36. SPIRONOLACTONE [Concomitant]
     Active Substance: SPIRONOLACTONE
     Indication: Product used for unknown indication
  37. CIPRODEX [Concomitant]
     Active Substance: CIPROFLOXACIN HYDROCHLORIDE\DEXAMETHASONE
     Indication: Product used for unknown indication
  38. GLIMEPIRIDE [Concomitant]
     Active Substance: GLIMEPIRIDE
     Indication: Product used for unknown indication
  39. CALCIUM CARBONATE\CHOLECALCIFEROL [Concomitant]
     Active Substance: CALCIUM CARBONATE\CHOLECALCIFEROL
  40. CVS coenzyme q 10 [Concomitant]
  41. DOXAZOSIN MESYLATE [Concomitant]
     Active Substance: DOXAZOSIN MESYLATE
  42. VALSARTAN [Concomitant]
     Active Substance: VALSARTAN
  43. MODAFINIL [Concomitant]
     Active Substance: MODAFINIL
  44. ATORVASTATIN CALCIUM [Concomitant]
     Active Substance: ATORVASTATIN CALCIUM
  45. ELIQUIS [Concomitant]
     Active Substance: APIXABAN
  46. HUMULIN N [Concomitant]
     Active Substance: INSULIN HUMAN
  47. DIPHENHYDRAMINE HYDROCHLORIDE [Concomitant]
     Active Substance: DIPHENHYDRAMINE HYDROCHLORIDE
  48. BYSTOLIC [Concomitant]
     Active Substance: NEBIVOLOL HYDROCHLORIDE
  49. CHOLECALCIFEROL [Concomitant]
     Active Substance: CHOLECALCIFEROL
  50. MESALAMINE [Concomitant]
     Active Substance: MESALAMINE

REACTIONS (33)
  - Pneumonia [Unknown]
  - Intra-abdominal haematoma [Unknown]
  - Colitis ulcerative [Unknown]
  - Atrial fibrillation [Unknown]
  - Cardiac failure congestive [Unknown]
  - Upper respiratory tract infection [Recovering/Resolving]
  - Drug hypersensitivity [Unknown]
  - Urinary tract infection [Recovered/Resolved]
  - Blood sodium decreased [Unknown]
  - Post-acute COVID-19 syndrome [Not Recovered/Not Resolved]
  - Blood magnesium decreased [Unknown]
  - Catheterisation cardiac abnormal [Recovering/Resolving]
  - Product dose omission issue [Unknown]
  - COVID-19 [Not Recovered/Not Resolved]
  - Sneezing [Unknown]
  - Arterial occlusive disease [Unknown]
  - Neck pain [Not Recovered/Not Resolved]
  - Blood pressure decreased [Unknown]
  - Product use complaint [Unknown]
  - Incorrect drug administration rate [Unknown]
  - Respiratory tract infection [Unknown]
  - Blood potassium decreased [Unknown]
  - Abdominal discomfort [Unknown]
  - Feeling abnormal [Unknown]
  - Somnolence [Unknown]
  - Swelling [Unknown]
  - Rash [Unknown]
  - Infusion site swelling [Unknown]
  - Cough [Unknown]
  - Pain [Unknown]
  - Infusion site pain [Unknown]
  - Dyspnoea [Not Recovered/Not Resolved]
  - Nausea [Not Recovered/Not Resolved]

NARRATIVE: CASE EVENT DATE: 20220511
